FAERS Safety Report 16106163 (Version 2)
Quarter: 2019Q1

REPORT INFORMATION
  Report Type: Report from Study
  Country: None (occurrence: DE)
  Receive Date: 20190322
  Receipt Date: 20190330
  Transmission Date: 20190418
  Serious: Yes (Other)
  Sender: FDA-Public Use
  Company Number: DE-ABBVIE-19K-062-2711526-00

PATIENT
  Age: 60 Year
  Sex: Male
  Weight: 96 kg

DRUGS (6)
  1. NEBILET [Concomitant]
     Active Substance: NEBIVOLOL
     Indication: CARDIOVASCULAR DISORDER
     Dates: start: 2002
  2. INNOHEP [Concomitant]
     Active Substance: TINZAPARIN SODIUM
     Indication: PRODUCT USED FOR UNKNOWN INDICATION
     Dates: start: 20190227
  3. ULTIBRO BREEZHALER [Concomitant]
     Active Substance: GLYCOPYRRONIUM\INDACATEROL
     Indication: PRODUCT USED FOR UNKNOWN INDICATION
     Dates: start: 201605
  4. CANDESARTAN. [Concomitant]
     Active Substance: CANDESARTAN
     Indication: CARDIOVASCULAR DISORDER
     Dates: start: 201706
  5. MAVIRET [Suspect]
     Active Substance: GLECAPREVIR\PIBRENTASVIR
     Indication: CHRONIC HEPATITIS C
     Route: 048
     Dates: start: 20180205, end: 20180401
  6. ASPIRIN. [Concomitant]
     Active Substance: ASPIRIN
     Indication: CARDIOVASCULAR DISORDER
     Dates: start: 2002

REACTIONS (1)
  - Hepatocellular carcinoma [Unknown]

NARRATIVE: CASE EVENT DATE: 20190227
